FAERS Safety Report 21451573 (Version 1)
Quarter: 2022Q4

REPORT INFORMATION
  Report Type: Spontaneous
  Country: US (occurrence: US)
  Receive Date: 20221013
  Receipt Date: 20221013
  Transmission Date: 20230113
  Serious: No
  Sender: FDA-Public Use
  Company Number: US-Indivior Limited- INDV-135225-2022

PATIENT
  Age: 24 Year
  Sex: Female

DRUGS (2)
  1. SUBLOCADE [Suspect]
     Active Substance: BUPRENORPHINE
     Indication: Drug dependence
     Dosage: 300 MILLIGRAM, QMO (GLUTEAL IM)
     Route: 030
     Dates: start: 20220610
  2. SUBLOCADE [Suspect]
     Active Substance: BUPRENORPHINE
     Dosage: 300 MILLIGRAM, QMO
     Route: 058
     Dates: start: 20220711

REACTIONS (5)
  - Off label use [Recovered/Resolved with Sequelae]
  - Product administered at inappropriate site [Recovered/Resolved]
  - Energy increased [Recovered/Resolved]
  - Injection site pain [Unknown]
  - Drug withdrawal syndrome [Not Recovered/Not Resolved]

NARRATIVE: CASE EVENT DATE: 20220610
